FAERS Safety Report 11050957 (Version 1)
Quarter: 2015Q2

REPORT INFORMATION
  Report Type: Spontaneous
  Country: US (occurrence: US)
  Receive Date: 20150421
  Receipt Date: 20150421
  Transmission Date: 20150821
  Serious: No
  Sender: FDA-Public Use
  Company Number: US-LEO PHARMA-233943

PATIENT
  Sex: Female

DRUGS (1)
  1. PICATO [Suspect]
     Active Substance: INGENOL MEBUTATE
     Indication: PRODUCT USED FOR UNKNOWN INDICATION

REACTIONS (6)
  - Product difficult to remove [Unknown]
  - Application site pain [Recovered/Resolved]
  - Application site dryness [Not Recovered/Not Resolved]
  - Drug ineffective [Unknown]
  - Product packaging quantity issue [Unknown]
  - Incorrect drug administration duration [Unknown]
